FAERS Safety Report 14104692 (Version 1)
Quarter: 2017Q4

REPORT INFORMATION
  Report Type: Spontaneous
  Country: US (occurrence: US)
  Receive Date: 20171018
  Receipt Date: 20171018
  Transmission Date: 20180321
  Serious: No
  Sender: FDA-Public Use
  Company Number: US-AMGEN-USASP2017129455

PATIENT
  Sex: Female

DRUGS (2)
  1. LETROZOLE. [Concomitant]
     Active Substance: LETROZOLE
     Indication: BREAST CANCER
  2. PROLIA [Suspect]
     Active Substance: DENOSUMAB
     Indication: BONE DENSITY INCREASED
     Dosage: 60 MG, Q6MO
     Route: 058
     Dates: start: 2013

REACTIONS (5)
  - Pain of skin [Not Recovered/Not Resolved]
  - Myalgia [Not Recovered/Not Resolved]
  - Pain in extremity [Not Recovered/Not Resolved]
  - Bone pain [Not Recovered/Not Resolved]
  - Blood urine present [Unknown]

NARRATIVE: CASE EVENT DATE: 201707
